FAERS Safety Report 10436580 (Version 1)
Quarter: 2014Q3

REPORT INFORMATION
  Report Type: Spontaneous
  Country: ES (occurrence: ES)
  Receive Date: 20140908
  Receipt Date: 20140908
  Transmission Date: 20150326
  Serious: Yes (Other)
  Sender: FDA-Public Use
  Company Number: ES-JNJFOC-20140903459

PATIENT

DRUGS (2)
  1. INFLIXIMAB, RECOMBINANT [Suspect]
     Active Substance: INFLIXIMAB
     Indication: CROHN^S DISEASE
     Route: 042
  2. INFLIXIMAB, RECOMBINANT [Suspect]
     Active Substance: INFLIXIMAB
     Indication: COLITIS ULCERATIVE
     Route: 042

REACTIONS (7)
  - Adverse event [Unknown]
  - Type IV hypersensitivity reaction [Unknown]
  - Infusion related reaction [Unknown]
  - Herpes zoster [Unknown]
  - Leishmaniasis [Unknown]
  - Meningitis viral [Unknown]
  - Therapeutic response decreased [Unknown]
